FAERS Safety Report 9120105 (Version 4)
Quarter: 2015Q2

REPORT INFORMATION
  Report Type: Spontaneous
  Country: US (occurrence: US)
  Receive Date: 20130226
  Receipt Date: 20150622
  Transmission Date: 20150821
  Serious: Yes (Hospitalization, Other)
  Sender: FDA-Public Use
  Company Number: US-009507513-1302USA011684

PATIENT
  Sex: Female

DRUGS (2)
  1. FOSAMAX PLUS D [Suspect]
     Active Substance: ALENDRONATE SODIUM\CHOLECALCIFEROL
     Indication: OSTEOPOROSIS
     Dosage: 70 MG, UNK
     Route: 048
     Dates: end: 2008
  2. FOSAMAX [Suspect]
     Active Substance: ALENDRONATE SODIUM
     Indication: OSTEOPOROSIS
     Dosage: UNK
     Route: 048

REACTIONS (26)
  - Anaemia [Unknown]
  - Dyslipidaemia [Unknown]
  - Cataract [Unknown]
  - Low turnover osteopathy [Unknown]
  - Haemorrhage [Unknown]
  - Glomerular filtration rate decreased [Unknown]
  - Postoperative renal failure [Recovering/Resolving]
  - Asthenia [Unknown]
  - Oedema peripheral [Unknown]
  - Balance disorder [Unknown]
  - Rotator cuff syndrome [Unknown]
  - Leukocytosis [Recovered/Resolved]
  - Hyponatraemia [Unknown]
  - Limb discomfort [Unknown]
  - Femur fracture [Recovered/Resolved]
  - Skin cancer [Unknown]
  - Hypothyroidism [Unknown]
  - Tendonitis [Unknown]
  - Fall [Unknown]
  - Hypertension [Unknown]
  - Blood pressure inadequately controlled [Unknown]
  - Impaired healing [Unknown]
  - Peripheral swelling [Unknown]
  - Chronic kidney disease [Unknown]
  - Hyperglycaemia [Unknown]
  - Anaemia postoperative [Recovering/Resolving]

NARRATIVE: CASE EVENT DATE: 2010
